FAERS Safety Report 9519068 (Version 1)
Quarter: 2013Q3

REPORT INFORMATION
  Report Type: Spontaneous
  Country: US (occurrence: None)
  Receive Date: 20130911
  Receipt Date: 20130911
  Transmission Date: 20140515
  Serious: Yes (Other)
  Sender: FDA-Public Use
  Company Number: None

PATIENT
  Age: 62 Year
  Sex: Male
  Weight: 79.38 kg

DRUGS (1)
  1. MIRAPEX [Suspect]
     Indication: RESTLESS LEGS SYNDROME
     Dosage: 2 PILLS A BEDTIME TAKEN BY MOUTH
     Route: 048

REACTIONS (4)
  - Obsessive-compulsive disorder [None]
  - Pathological gambling [None]
  - Thinking abnormal [None]
  - Sleep disorder [None]
